FAERS Safety Report 5507548-7 (Version None)
Quarter: 2007Q4

REPORT INFORMATION
  Report Type: 
  Country: None (occurrence: None)
  Receive Date: 20071106
  Receipt Date: 20071026
  Transmission Date: 20080405
  Serious: Yes (Hospitalization, Other)
  Sender: FDA-Public Use
  Company Number: US-BAYER-200616770BWH

PATIENT
  Age: 73 Year
  Sex: Male

DRUGS (18)
  1. NEXAVAR [Suspect]
     Indication: RENAL CELL CARCINOMA STAGE UNSPECIFIED
     Route: 048
     Dates: start: 20061001
  2. ANTIHYPERTENSIVES (NOS) [Concomitant]
     Indication: HYPERTENSION
  3. PLAVIX [Concomitant]
  4. PLAVIX [Concomitant]
     Dosage: TOTAL DAILY DOSE: 75 MG
  5. ASPIRIN [Concomitant]
  6. ASPIRIN [Concomitant]
     Dosage: TOTAL DAILY DOSE: 81 MG
  7. CLONIDINE [Concomitant]
  8. CLONIDINE [Concomitant]
     Dosage: TOTAL DAILY DOSE: 0.2 MG
  9. DIOVAN [Concomitant]
  10. DIOVAN [Concomitant]
     Dosage: TOTAL DAILY DOSE: 160 MG
  11. FLOMAX [Concomitant]
  12. FLOMAX [Concomitant]
     Dosage: TOTAL DAILY DOSE: 0.4 MG
  13. AVODART [Concomitant]
  14. AVODART [Concomitant]
     Dosage: AS USED: 0.5 MG
  15. VITAMIN B6 [Concomitant]
     Indication: PROPHYLAXIS
     Dosage: TOTAL DAILY DOSE: 200 MG
     Route: 048
  16. VITAMIN B6 [Concomitant]
  17. METHYLDOPA [Concomitant]
  18. ATENOLOL [Concomitant]

REACTIONS (4)
  - CEREBROVASCULAR ACCIDENT [None]
  - CLOSTRIDIUM DIFFICILE COLITIS [None]
  - LABILE HYPERTENSION [None]
  - TESTICULAR ABSCESS [None]
